FAERS Safety Report 19207285 (Version 5)
Quarter: 2021Q3

REPORT INFORMATION
  Report Type: Report from Study
  Country: IN (occurrence: IN)
  Receive Date: 20210503
  Receipt Date: 20210720
  Transmission Date: 20211014
  Serious: Yes (Death, Hospitalization)
  Sender: FDA-Public Use
  Company Number: IN-PFIZER INC-2021471294

PATIENT
  Age: 52 Year
  Sex: Male
  Weight: 48.2 kg

DRUGS (3)
  1. HYDROCHLOROTHIAZIDE/TELMISARTAN [Concomitant]
     Active Substance: HYDROCHLOROTHIAZIDE\TELMISARTAN
     Indication: HYPERTENSION
     Dosage: [TELMISARTAN 40 MG]/[HYDROCHLOROTHIAZIDE 12.5 MG], 1X/DAY
     Route: 048
     Dates: start: 201611
  2. DACOMITINIB [Suspect]
     Active Substance: DACOMITINIB
     Indication: NON-SMALL CELL LUNG CANCER
     Dosage: 45 MG, 1X/DAY
     Route: 048
     Dates: start: 20210301, end: 20210329
  3. DACOMITINIB [Suspect]
     Active Substance: DACOMITINIB
     Dosage: 45 MG, 1X/DAY
     Route: 048
     Dates: start: 20210419, end: 20210427

REACTIONS (1)
  - Sepsis [Fatal]

NARRATIVE: CASE EVENT DATE: 20210427
